FAERS Safety Report 6902235-2 (Version None)
Quarter: 2010Q3

REPORT INFORMATION
  Report Type: 
  Country: None (occurrence: None)
  Receive Date: 20100803
  Receipt Date: 20080501
  Transmission Date: 20110219
  Serious: No
  Sender: FDA-Public Use
  Company Number: US-PFIZER INC-2008038101

PATIENT
  Sex: Female
  Weight: 111.8 kg

DRUGS (16)
  1. LYRICA [Suspect]
     Indication: FIBROMYALGIA
     Route: 048
     Dates: start: 20080426, end: 20080428
  2. LORTAB [Concomitant]
  3. FLEXERIL [Concomitant]
  4. MOBIC [Concomitant]
  5. FOLIC ACID [Concomitant]
  6. METHOTREXATE [Concomitant]
     Route: 058
  7. HUMIRA [Concomitant]
     Route: 058
  8. GLUCOPHAGE [Concomitant]
  9. EFFEXOR XR [Concomitant]
  10. AMBIEN [Concomitant]
  11. ALLEGRA [Concomitant]
  12. NEXIUM [Concomitant]
  13. TRI-NORINYL 21-DAY [Concomitant]
  14. FLONASE [Concomitant]
     Route: 045
  15. TRACE ELEMENTS [Concomitant]
  16. VITAMIN E [Concomitant]

REACTIONS (1)
  - PARAESTHESIA [None]
